FAERS Safety Report 10693266 (Version 1)
Quarter: 2015Q1

REPORT INFORMATION
  Report Type: Spontaneous
  Country: IT (occurrence: IT)
  Receive Date: 20150106
  Receipt Date: 20150106
  Transmission Date: 20150720
  Serious: Yes (Hospitalization)
  Sender: FDA-Public Use
  Company Number: IT-TEVA-532373ISR

PATIENT
  Age: 55 Year
  Sex: Male
  Weight: 82 kg

DRUGS (4)
  1. ERBITUX [Suspect]
     Active Substance: CETUXIMAB
     Indication: COLON CANCER
     Dosage: 480 MG WEEKLY
     Route: 041
     Dates: start: 20140203
  2. FLUORO-URACILE MEDA - 500 MG/10 ML SOLUZIONE INIETTABILE [Suspect]
     Active Substance: FLUOROURACIL
     Indication: COLON NEOPLASM
     Dosage: 2800 MG CYCLICAL
     Route: 042
     Dates: start: 20140203
  3. IRINOTECAN HYDROCHLORIDE TRIHYDRATE [Suspect]
     Active Substance: IRINOTECAN HYDROCHLORIDE
     Indication: COLON CANCER
     Dosage: 245 MG CYCLICAL
     Route: 041
     Dates: start: 20140203
  4. LANSOPRAZOLE. [Concomitant]
     Active Substance: LANSOPRAZOLE
     Indication: GASTRIC DISORDER
     Dosage: 30 MG
     Route: 048
     Dates: start: 20140203

REACTIONS (3)
  - Intervertebral discitis [Recovering/Resolving]
  - Joint effusion [Recovering/Resolving]
  - Staphylococcal bacteraemia [Recovering/Resolving]

NARRATIVE: CASE EVENT DATE: 20141017
